FAERS Safety Report 8826592 (Version 1)
Quarter: 2012Q4

REPORT INFORMATION
  Report Type: 
  Country: CA (occurrence: CA)
  Receive Date: 20121007
  Receipt Date: 20121007
  Transmission Date: 20130627
  Serious: Yes (Hospitalization)
  Sender: FDA-Public Use
  Company Number: CA-MYLANLABS-2012S1019979

PATIENT
  Age: 5 Year
  Sex: Female

DRUGS (1)
  1. VALPROATE [Suspect]
     Indication: CONVULSION
     Route: 048

REACTIONS (2)
  - Pancreatitis acute [Recovered/Resolved with Sequelae]
  - Diabetes mellitus [Recovering/Resolving]
